FAERS Safety Report 6575666-0 (Version None)
Quarter: 2010Q1

REPORT INFORMATION
  Report Type: 
  Country: None (occurrence: None)
  Receive Date: 20100209
  Receipt Date: 20100203
  Transmission Date: 20100710
  Serious: Yes (Life-Threatening, Other)
  Sender: FDA-Public Use
  Company Number: DE-MERCK-1002USA00976B1

PATIENT
  Age: 8 Week

DRUGS (1)
  1. HYDROCORTISONE [Suspect]
     Indication: IMMUNE SYSTEM DISORDER
     Route: 065

REACTIONS (5)
  - ATRIOVENTRICULAR BLOCK COMPLETE [None]
  - BRADYCARDIA FOETAL [None]
  - CARDIAC FAILURE ACUTE [None]
  - CARDIAC PACEMAKER INSERTION [None]
  - NEONATAL LUPUS ERYTHEMATOSUS [None]
